FAERS Safety Report 16272044 (Version 2)
Quarter: 2019Q3

REPORT INFORMATION
  Report Type: Spontaneous
  Country: FR (occurrence: FR)
  Receive Date: 20190506
  Receipt Date: 20190827
  Transmission Date: 20191004
  Serious: Yes (Death)
  Sender: FDA-Public Use
  Company Number: FR-ZYDUS-036489

PATIENT
  Age: 57 Year
  Sex: Female
  Weight: 60 kg

DRUGS (7)
  1. TIAPRIDE [Suspect]
     Active Substance: TIAPRIDE
     Indication: PRODUCT USED FOR UNKNOWN INDICATION
     Route: 048
  2. LORMETAZEPAM [Concomitant]
     Active Substance: LORMETAZEPAM
     Indication: BURNOUT SYNDROME
     Route: 048
     Dates: start: 201812
  3. VENLAFAXINE/VENLAFAXINE HYDROCHLORIDE [Suspect]
     Active Substance: VENLAFAXINE HYDROCHLORIDE
     Indication: BURNOUT SYNDROME
     Route: 048
     Dates: start: 201812
  4. ALIMEMAZINE [Suspect]
     Active Substance: TRIMEPRAZINE
     Indication: BURNOUT SYNDROME
     Route: 048
     Dates: start: 201812
  5. TERCIAN [Concomitant]
     Active Substance: CYAMEMAZINE
     Indication: BURNOUT SYNDROME
     Route: 048
     Dates: start: 201812
  6. PRAZEPAM [Suspect]
     Active Substance: PRAZEPAM
     Indication: BURNOUT SYNDROME
     Route: 048
     Dates: start: 201812
  7. DECONTRACTYL (MEPHENESIN\METHYL NICOTINATE) [Suspect]
     Active Substance: MEPHENESIN\METHYL NICOTINATE
     Indication: NECK PAIN
     Dosage: 1 TO 2 BOXES UP TO 5 ACCORDING TO THE ENTOURAGE
     Route: 048
     Dates: start: 2012

REACTIONS (5)
  - Aspiration [Fatal]
  - Depressed level of consciousness [Fatal]
  - Respiratory depression [Fatal]
  - Death [Fatal]
  - Poisoning deliberate [Fatal]

NARRATIVE: CASE EVENT DATE: 20190414
